FAERS Safety Report 12242370 (Version 1)
Quarter: 2016Q2

REPORT INFORMATION
  Report Type: Spontaneous
  Country: US (occurrence: US)
  Receive Date: 20160406
  Receipt Date: 20160406
  Transmission Date: 20160815
  Serious: Yes (Death, Hospitalization)
  Sender: FDA-Public Use
  Company Number: US-SA-2015SA179485

PATIENT
  Age: 36 Year
  Sex: Female

DRUGS (6)
  1. VASOPRESSIN. [Suspect]
     Active Substance: VASOPRESSIN
     Indication: HYPOTENSION
     Route: 065
  2. NOREPINEPHRINE [Suspect]
     Active Substance: NOREPINEPHRINE\NOREPINEPHRINE BITARTRATE
     Indication: HYPOTENSION
     Route: 065
  3. MILRINONE [Suspect]
     Active Substance: MILRINONE
     Indication: HYPOTENSION
     Route: 065
  4. ISOPROTERENOL [Suspect]
     Active Substance: ISOPROTERENOL
     Indication: HYPOTENSION
     Route: 065
  5. PROTAMINE SULFATE. [Suspect]
     Active Substance: PROTAMINE SULFATE
     Indication: PROCOAGULANT THERAPY
     Dosage: INFUSION
     Route: 065
  6. EPINEPHRINE. [Suspect]
     Active Substance: EPINEPHRINE
     Indication: HYPOTENSION
     Route: 065

REACTIONS (16)
  - Multiple organ dysfunction syndrome [Fatal]
  - Ischaemic hepatitis [Fatal]
  - Renal failure [Fatal]
  - Echocardiogram abnormal [Unknown]
  - Hypotension [Unknown]
  - Acidosis [Fatal]
  - Transplant failure [Unknown]
  - Drug ineffective [Unknown]
  - Circulatory collapse [Fatal]
  - Cardiac failure [Fatal]
  - Vasoconstriction [Unknown]
  - Vasoplegia syndrome [Unknown]
  - Pulmonary hypertension [Unknown]
  - Respiratory gas exchange disorder [Fatal]
  - Oliguria [Fatal]
  - Acute right ventricular failure [Unknown]
